FAERS Safety Report 7906079-4 (Version None)
Quarter: 2011Q4

REPORT INFORMATION
  Report Type: 
  Country: None (occurrence: None)
  Receive Date: 20111109
  Receipt Date: 20111109
  Transmission Date: 20120403
  Serious: Yes (Life-Threatening)
  Sender: FDA-Public Use
  Company Number: None

PATIENT
  Sex: Male
  Weight: 84.369 kg

DRUGS (1)
  1. DALIRESP [Suspect]
     Indication: EMPHYSEMA
     Dosage: 1 DAILY ORAL
     Route: 048
     Dates: start: 20110701, end: 20110801

REACTIONS (1)
  - DYSPNOEA [None]
